FAERS Safety Report 7933022-4 (Version None)
Quarter: 2011Q4

REPORT INFORMATION
  Report Type: 
  Country: None (occurrence: None)
  Receive Date: 20111121
  Receipt Date: 20111121
  Transmission Date: 20120403
  Serious: Yes (Hospitalization)
  Sender: FDA-Public Use
  Company Number: None

PATIENT
  Sex: Female
  Weight: 61.36 kg

DRUGS (2)
  1. CARBOPLATIN [Suspect]
     Dosage: 612 MG
  2. TAXOL [Suspect]
     Dosage: 283 MG

REACTIONS (11)
  - PAIN [None]
  - HAEMATOCRIT DECREASED [None]
  - POLLAKIURIA [None]
  - URINARY TRACT INFECTION [None]
  - HEART RATE INCREASED [None]
  - FEBRILE NEUTROPENIA [None]
  - WHITE BLOOD CELL COUNT DECREASED [None]
  - DYSURIA [None]
  - DIARRHOEA [None]
  - EAR PAIN [None]
  - HAEMOGLOBIN DECREASED [None]
